FAERS Safety Report 7006670-6 (Version None)
Quarter: 2010Q3

REPORT INFORMATION
  Report Type: 
  Country: None (occurrence: None)
  Receive Date: 20100913
  Receipt Date: 20100907
  Transmission Date: 20110219
  Serious: Yes (Hospitalization, Other)
  Sender: FDA-Public Use
  Company Number: 2010SP045996

PATIENT
  Age: 66 Year
  Sex: Male

DRUGS (6)
  1. CELESTAMINE (BETAMETHASONE/DEXCHLORPHENIRAMINE) (BETAMETHASONE/DEXCHLO [Suspect]
     Indication: PRODUCT USED FOR UNKNOWN INDICATION
  2. CLARITIN REDITABS [Suspect]
     Indication: PRODUCT USED FOR UNKNOWN INDICATION
     Dosage: PO
     Route: 048
  3. ERLOTINIB HYDROCHLORIDE [Suspect]
     Indication: PRODUCT USED FOR UNKNOWN INDICATION
     Dosage: 150 MG; 100 MG
  4. OLOPATADINE HYDROCHLORIDE [Suspect]
     Indication: PRODUCT USED FOR UNKNOWN INDICATION
  5. PROHEPARUM [Concomitant]
  6. REBAMIPIDE [Concomitant]

REACTIONS (2)
  - HEPATIC FUNCTION ABNORMAL [None]
  - RASH [None]
